FAERS Safety Report 8189650-7 (Version None)
Quarter: 2012Q1

REPORT INFORMATION
  Report Type: 
  Country: None (occurrence: None)
  Receive Date: 20120305
  Receipt Date: 20120214
  Transmission Date: 20120608
  Serious: Yes (Hospitalization)
  Sender: FDA-Public Use
  Company Number: 2012FR0071

PATIENT
  Age: 28 Year
  Sex: Female

DRUGS (4)
  1. FORLAX (MACROGOL) [Concomitant]
  2. TRAMADOL HCL [Concomitant]
  3. KINERET [Suspect]
     Indication: JUVENILE ARTHRITIS
     Dosage: 100 MG (100 MG, 1 IN 1 D) SUBCUTANEOUS
     Route: 058
     Dates: start: 20120104, end: 20120109
  4. PREDNISONE TAB [Concomitant]

REACTIONS (1)
  - CYTOLYTIC HEPATITIS [None]
